FAERS Safety Report 7831161-X (Version None)
Quarter: 2011Q4

REPORT INFORMATION
  Report Type: 
  Country: None (occurrence: None)
  Receive Date: 20111021
  Receipt Date: 20111011
  Transmission Date: 20120403
  Serious: Yes (Hospitalization)
  Sender: FDA-Public Use
  Company Number: US-JNJFOC-20100404265

PATIENT
  Sex: Male
  Weight: 47.8 kg

DRUGS (25)
  1. HUMIRA [Suspect]
     Indication: CROHN'S DISEASE
     Dates: start: 20090512, end: 20100324
  2. BENADRYL [Concomitant]
  3. NALBUPHINE [Concomitant]
  4. IRON [Concomitant]
  5. CHOLECALCIFEROL [Concomitant]
  6. MORPHINE [Concomitant]
  7. MIRALAX [Concomitant]
  8. CHLORHEXIDINE GLUCONATE [Concomitant]
  9. INFLIXIMAB [Suspect]
     Indication: CROHN'S DISEASE
     Dosage: PRIOR TO REGISTRY
     Route: 042
     Dates: start: 20051103, end: 20090429
  10. PREDNISONE [Suspect]
     Indication: CROHN'S DISEASE
  11. RIFAXIMIN [Concomitant]
  12. COTRIM [Concomitant]
  13. CYTARABINE [Concomitant]
  14. ZANTAC [Concomitant]
  15. METHOTREXATE [Suspect]
     Indication: CROHN'S DISEASE
  16. PEPTAMEN [Concomitant]
  17. IMODIUM [Concomitant]
  18. SCOPOLAMINE [Concomitant]
  19. VANCOMYCIN HCL [Concomitant]
  20. ZOSYN [Concomitant]
  21. ATIVAN [Concomitant]
  22. ZOFRAN [Concomitant]
  23. CALCIUM CARBONATE [Concomitant]
  24. FOLIC ACID [Concomitant]
  25. FLUCONAZOLE [Concomitant]

REACTIONS (3)
  - MULTI-ORGAN FAILURE [None]
  - TRANSFUSION REACTION [None]
  - ACUTE MONOCYTIC LEUKAEMIA [None]
